FAERS Safety Report 19877702 (Version 5)
Quarter: 2022Q4

REPORT INFORMATION
  Report Type: Spontaneous
  Country: ES (occurrence: ES)
  Receive Date: 20210923
  Receipt Date: 20221230
  Transmission Date: 20230113
  Serious: Yes (Hospitalization, Other)
  Sender: FDA-Public Use
  Company Number: ES-NOVARTISPH-NVSC2020ES322500

PATIENT
  Age: 66 Year
  Sex: Male

DRUGS (9)
  1. TAMSULOSIN [Interacting]
     Active Substance: TAMSULOSIN
     Indication: Urinary retention
     Dosage: 0.4 MG, ONCE DAILY
     Route: 065
  2. VORICONAZOLE [Interacting]
     Active Substance: VORICONAZOLE
     Indication: Bronchopulmonary aspergillosis
     Dosage: UNK (NEBULISATION)
     Route: 055
  3. VORICONAZOLE [Interacting]
     Active Substance: VORICONAZOLE
     Dosage: 400 MG, EVERY 12 HOURS (LOADING DOSE)
     Route: 065
  4. VORICONAZOLE [Interacting]
     Active Substance: VORICONAZOLE
     Dosage: 200 MG, EVERY 12 HOURS (SUBSEQUENT MAINTENANCE)
     Route: 065
  5. AMPHOTERICIN B [Concomitant]
     Active Substance: AMPHOTERICIN B
     Indication: Bronchopulmonary aspergillosis
     Dosage: UNK (NEBULISATION, NEBULISER SOLUTION)
     Route: 055
  6. AMPHOTERICIN B [Concomitant]
     Active Substance: AMPHOTERICIN B
     Dosage: (POWDER)
     Route: 065
  7. AMPHOTERICIN B [Concomitant]
     Active Substance: AMPHOTERICIN B
     Dosage: 50 MG, THRICE WEEKLY (NEBULISED AMPHOTERICIN B)
     Route: 065
  8. AMPHOTERICIN B [Concomitant]
     Active Substance: AMPHOTERICIN B
     Dosage: 50 MG, ONCE WEEKLY (NEBULISED AMPHOTERICIN B)
     Route: 065
  9. AMLODIPINE [Concomitant]
     Active Substance: AMLODIPINE BESYLATE
     Indication: Hypertension
     Dosage: 5 MG, QD
     Route: 065

REACTIONS (6)
  - Hypotension [Recovered/Resolved]
  - Blood pressure decreased [Recovered/Resolved]
  - Urinary retention [Unknown]
  - Drug level increased [Unknown]
  - Drug interaction [Unknown]
  - Product use in unapproved indication [Unknown]
